FAERS Safety Report 10186167 (Version 1)
Quarter: 2014Q2

REPORT INFORMATION
  Report Type: Spontaneous
  Country: US (occurrence: US)
  Receive Date: 20140521
  Receipt Date: 20140521
  Transmission Date: 20141212
  Serious: Yes (Death)
  Sender: FDA-Public Use
  Company Number: US-GLAXOSMITHKLINE-A1063435A

PATIENT
  Age: 94 Year
  Sex: Female

DRUGS (1)
  1. PROMACTA [Suspect]
     Indication: THROMBOCYTOPENIA
     Dosage: 25MG PER DAY

REACTIONS (3)
  - Drug dose omission [Unknown]
  - Rehabilitation therapy [Unknown]
  - Death [Fatal]
